FAERS Safety Report 5276500-1 (Version None)
Quarter: 2007Q1

REPORT INFORMATION
  Report Type: 
  Country: None (occurrence: None)
  Receive Date: 20061214
  Receipt Date: 20061014
  Transmission Date: 20070707
  Serious: Yes (Other)
  Sender: FDA-Public Use
  Company Number: 2006126681

PATIENT

DRUGS (1)
  1. ERAXIS [Suspect]
     Dosage: INTRAVENOUS
     Route: 042

REACTIONS (1)
  - INJECTION SITE REACTION [None]
